FAERS Safety Report 9821741 (Version 1)
Quarter: 2014Q1

REPORT INFORMATION
  Report Type: Spontaneous
  Country: US (occurrence: US)
  Receive Date: 20140116
  Receipt Date: 20140116
  Transmission Date: 20141002
  Serious: No
  Sender: FDA-Public Use
  Company Number: US-PFIZER INC-2014009696

PATIENT
  Sex: Female

DRUGS (3)
  1. ADVIL PM [Suspect]
     Indication: MYALGIA
     Dosage: UNK
  2. ADVIL PM [Suspect]
     Indication: SLEEP DISORDER
  3. ADVIL [Suspect]
     Indication: MYALGIA
     Dosage: UNK

REACTIONS (3)
  - Drug ineffective [Unknown]
  - Dysphagia [Unknown]
  - Product physical issue [Unknown]
